FAERS Safety Report 22641739 (Version 7)
Quarter: 2023Q4

REPORT INFORMATION
  Report Type: Spontaneous
  Country: ES (occurrence: ES)
  Receive Date: 20230626
  Receipt Date: 20231213
  Transmission Date: 20240110
  Serious: Yes (Death, Other)
  Sender: FDA-Public Use
  Company Number: None

PATIENT
  Age: 83 Year
  Sex: Female
  Weight: 52 kg

DRUGS (41)
  1. ETANERCEPT [Suspect]
     Active Substance: ETANERCEPT
     Indication: Rheumatoid arthritis
     Dosage: UNK
     Route: 065
  2. RITUXIMAB [Suspect]
     Active Substance: RITUXIMAB
     Indication: Rheumatoid arthritis
     Dosage: UNK
     Route: 065
  3. FOLIC ACID [Suspect]
     Active Substance: FOLIC ACID
     Dosage: 60 MILLIGRAM, QD
     Route: 065
  4. FOLIC ACID [Suspect]
     Active Substance: FOLIC ACID
     Dosage: UNK
     Route: 065
  5. ETORICOXIB [Suspect]
     Active Substance: ETORICOXIB
     Dosage: 60 MILLIGRAM, QD
     Route: 065
  6. ETORICOXIB [Suspect]
     Active Substance: ETORICOXIB
     Dosage: 60 MG, QD
     Route: 065
  7. ETORICOXIB [Suspect]
     Active Substance: ETORICOXIB
     Dosage: 500 MILLIGRAM, QD (PREFERABLY WITH MEALS)
     Route: 065
  8. CALCIUM [Suspect]
     Active Substance: CALCIUM
     Dosage: 500 MG, QD; PREFERABLY WITH MEALS
     Route: 065
  9. CALCIUM [Suspect]
     Active Substance: CALCIUM
     Dosage: 500 MG, QD (PREFERABLY WITH MEALS)
     Route: 065
  10. ADALIMUMAB [Suspect]
     Active Substance: ADALIMUMAB\ISOPROPYL ALCOHOL
     Indication: Rheumatoid arthritis
     Dosage: UNK
     Route: 065
  11. LOSARTAN POTASSIUM [Suspect]
     Active Substance: LOSARTAN POTASSIUM
     Dosage: UNK
     Route: 065
  12. LOSARTAN POTASSIUM [Suspect]
     Active Substance: LOSARTAN POTASSIUM
     Dosage: UNK
     Route: 065
  13. BOSENTAN [Suspect]
     Active Substance: BOSENTAN
     Indication: Pulmonary arterial hypertension
     Dosage: 125 MG, BID
     Route: 065
  14. BOSENTAN [Suspect]
     Active Substance: BOSENTAN
     Dosage: 125 MG, BID (EVERY 12 HOURS)
     Route: 065
  15. OLUMIANT [Suspect]
     Active Substance: BARICITINIB
     Indication: Rheumatoid arthritis
     Dosage: 2 MILLIGRAM, QD
     Route: 048
     Dates: start: 20201120
  16. FUROSEMIDE [Suspect]
     Active Substance: FUROSEMIDE
     Dosage: 20 MILLIGRAM (IN THE MORNING BEFORE BREAKFAST)
     Route: 065
  17. FUROSEMIDE [Suspect]
     Active Substance: FUROSEMIDE
     Dosage: UNK
     Route: 065
  18. RABEPRAZOLE [Suspect]
     Active Substance: RABEPRAZOLE
     Dosage: 20 MG , IN THE MORNING BEFORE BREAKFAST
     Route: 065
  19. RABEPRAZOLE [Suspect]
     Active Substance: RABEPRAZOLE
     Dosage: 20 MG, QD (IN THE MORNING BEFORE BREAKFAST) (FORMULATION TABLET)
     Route: 065
  20. PROLIA [Suspect]
     Active Substance: DENOSUMAB
     Dosage: UNK
     Route: 065
     Dates: start: 20150415
  21. PROLIA [Suspect]
     Active Substance: DENOSUMAB
     Dosage: 60 MILLIGRAM, Q6MO (UNIT=PREFILLED SYRINGE)
     Route: 058
     Dates: start: 202002
  22. TOCILIZUMAB [Suspect]
     Active Substance: TOCILIZUMAB
     Indication: Rheumatoid arthritis
     Dosage: UNK
     Route: 065
  23. TOCILIZUMAB [Suspect]
     Active Substance: TOCILIZUMAB
     Dosage: UNK
     Route: 065
  24. ASPIRIN [Suspect]
     Active Substance: ASPIRIN
     Dosage: 100 MG, QD
     Route: 065
  25. ASPIRIN [Suspect]
     Active Substance: ASPIRIN
     Dosage: 100 MG, QD
     Route: 065
  26. ASPIRIN [Suspect]
     Active Substance: ASPIRIN
     Dosage: 600 MILLIGRAM (ONE TABLET DAILY EVERY 12 HOURS)
     Route: 065
  27. PENTOXIFYLLINE [Suspect]
     Active Substance: PENTOXIFYLLINE
     Dosage: 600 MG, ONE TABLET DAILY EVERY 12 HOURS
     Route: 065
  28. PENTOXIFYLLINE [Suspect]
     Active Substance: PENTOXIFYLLINE
     Dosage: 600 MG, ONE TABLET DAILY EVERY 12 HOURS
     Route: 065
  29. ORENCIA [Suspect]
     Active Substance: ABATACEPT
     Indication: Rheumatoid arthritis
     Dosage: UNK
     Route: 065
  30. ORENCIA [Suspect]
     Active Substance: ABATACEPT
     Dosage: UNK
     Route: 065
  31. ACETAMINOPHEN [Suspect]
     Active Substance: ACETAMINOPHEN
     Dosage: 500 MG, TID
     Route: 065
  32. ACETAMINOPHEN [Suspect]
     Active Substance: ACETAMINOPHEN
     Dosage: 500 MG, Q8H (TID)
     Route: 065
  33. PREDNISONE [Suspect]
     Active Substance: PREDNISONE
     Indication: Rheumatoid arthritis
     Dosage: 10 MG, QD; 5 MG TWO TABLETS IN THE MORNINGS, MORE DOSE IF CRISIS
     Route: 065
     Dates: start: 20201120
  34. CALCIFEDIOL [Suspect]
     Active Substance: CALCIFEDIOL
     Dosage: ONE AMPOULE DRINK ONE DAY EVERY MONTH
     Route: 065
  35. CALCIFEDIOL [Suspect]
     Active Substance: CALCIFEDIOL
     Dosage: ONE AMPOULE DRINK ONE DAY EVERY MONTH
     Route: 065
  36. TRAMADOL HYDROCHLORIDE [Suspect]
     Active Substance: TRAMADOL HYDROCHLORIDE
     Dosage: 50 MG; 1-2 CAPSULES IF SEVERE PAIN (REPEATABLE EVERY 8 HOURS)
     Route: 065
     Dates: start: 20150405
  37. TRAMADOL HYDROCHLORIDE [Suspect]
     Active Substance: TRAMADOL HYDROCHLORIDE
     Dosage: 50 MG (1-2 CAPSULES IF SEVERE PAIN (REPEATABLE EVERY 8 HOURS) ( FORMULATION CAPSULE)
     Route: 065
  38. DENOSUMAB [Suspect]
     Active Substance: DENOSUMAB
     Dosage: UNK
     Route: 065
     Dates: start: 20150415
  39. DENOSUMAB [Suspect]
     Active Substance: DENOSUMAB
     Dosage: FREQ:6 MO;60 MG, Q6M (EVERY 6 MONTHS)
     Route: 058
     Dates: start: 202002
  40. BARICITINIB [Suspect]
     Active Substance: BARICITINIB
     Indication: Rheumatoid arthritis
     Dosage: 2 MG, 1X/DAY
     Route: 048
     Dates: start: 20201120
  41. RITUXIMAB [Concomitant]
     Active Substance: RITUXIMAB
     Indication: Rheumatoid arthritis
     Dosage: UNK
     Route: 065

REACTIONS (3)
  - Ischaemic stroke [Fatal]
  - Bradycardia [Unknown]
  - Oxygen saturation decreased [Unknown]

NARRATIVE: CASE EVENT DATE: 20201204
